FAERS Safety Report 6460220-1 (Version None)
Quarter: 2009Q4

REPORT INFORMATION
  Report Type: 
  Country: None (occurrence: None)
  Receive Date: 20091130
  Receipt Date: 20091123
  Transmission Date: 20100525
  Serious: Yes (Death, Hospitalization, Other)
  Sender: FDA-Public Use
  Company Number: GB-RANBAXY-2009RR-29410

PATIENT

DRUGS (1)
  1. PARACETAMOL [Suspect]
     Route: 065

REACTIONS (3)
  - ACUTE HEPATIC FAILURE [None]
  - COMPLETED SUICIDE [None]
  - OVERDOSE [None]
